FAERS Safety Report 4655924-7 (Version None)
Quarter: 2005Q2

REPORT INFORMATION
  Report Type: 
  Country: None (occurrence: None)
  Receive Date: 20050506
  Receipt Date: 20050506
  Transmission Date: 20051028
  Serious: Yes (Hospitalization)
  Sender: FDA-Public Use
  Company Number: None

PATIENT
  Age: 54 Year
  Sex: Male
  Weight: 127.4608 kg

DRUGS (7)
  1. GEMCITABINE [Suspect]
     Indication: PARAGANGLION NEOPLASM
     Dosage: 380  Q2 WEEKS  INTRAVENOU
     Route: 042
     Dates: start: 20050425, end: 20050426
  2. IRINOTECAN HCL [Suspect]
     Indication: PARAGANGLION NEOPLASM
     Dosage: 280  Q2 WEEKS  INTRAVENOU
     Route: 042
     Dates: start: 20050426, end: 20050427
  3. LANOXIN [Concomitant]
  4. ATENOLOL [Concomitant]
  5. ASPIRIN [Concomitant]
  6. OXYCODONE [Concomitant]
  7. FLEXERIL [Concomitant]

REACTIONS (2)
  - DIARRHOEA [None]
  - DRUG INEFFECTIVE [None]
